FAERS Safety Report 24701303 (Version 1)
Quarter: 2024Q4

REPORT INFORMATION
  Report Type: Spontaneous
  Country: DK (occurrence: DK)
  Receive Date: 20241205
  Receipt Date: 20241205
  Transmission Date: 20250114
  Serious: Yes (Other)
  Sender: ALCON
  Company Number: None

PATIENT

DRUGS (1)
  1. LATANOPROST\NETARSUDIL MESYLATE [Suspect]
     Active Substance: LATANOPROST\NETARSUDIL MESYLATE
     Indication: Glaucoma
     Dosage: 1 DROP IN BOTH EYES ONCE DAILY
     Route: 047
     Dates: start: 2024

REACTIONS (1)
  - Cornea verticillata [Not Recovered/Not Resolved]

NARRATIVE: CASE EVENT DATE: 20241101
